FAERS Safety Report 17112293 (Version 2)
Quarter: 2020Q3

REPORT INFORMATION
  Report Type: Report from Study
  Country: US (occurrence: US)
  Receive Date: 20191204
  Receipt Date: 20200213
  Transmission Date: 20201104
  Serious: Yes (Hospitalization)
  Sender: FDA-Public Use
  Company Number: US-PFIZER INC-2019470489

PATIENT
  Age: 69 Year
  Sex: Male
  Weight: 102.2 kg

DRUGS (14)
  1. TALAZOPARIB. [Suspect]
     Active Substance: TALAZOPARIB
     Indication: PROSTATE CANCER METASTATIC
     Dosage: UNK, 1X/DAY
     Route: 048
     Dates: start: 20190617, end: 20191024
  2. COLLOIDAL SILVER [Concomitant]
     Active Substance: SILVER
     Indication: PROPHYLAXIS
     Dosage: UNK
  3. VITAMIN D3 [Concomitant]
     Active Substance: CHOLECALCIFEROL
     Indication: PROPHYLAXIS
     Dosage: UNK
  4. GENERAL NUTRIENTS;MINERALS NOS [Concomitant]
     Indication: PROPHYLAXIS
     Dosage: CALCIFOOD
  5. BOSWELLIA SERRATA EXTRACT [Concomitant]
     Active Substance: INDIAN FRANKINCENSE
     Indication: PROPHYLAXIS
     Dosage: BOSWELLIA WITH FRANKINCENSE OIL
  6. CURAMED [Concomitant]
     Indication: PROPHYLAXIS
     Dosage: CURCUMIN
  7. SENNA [SENNOSIDE A+B] [Concomitant]
     Indication: CONSTIPATION PROPHYLAXIS
     Dosage: UNK
  8. VITAMIN C [Concomitant]
     Active Substance: ASCORBIC ACID
     Indication: PROPHYLAXIS
     Dosage: SUPER C PLUS
  9. TIMOLOL. [Concomitant]
     Active Substance: TIMOLOL
     Indication: GLAUCOMA
     Dosage: UNK
  10. ACETAMINOPHEN. [Concomitant]
     Active Substance: ACETAMINOPHEN
     Indication: CANCER PAIN
     Dosage: UNK
  11. GENERAL NUTRIENTS;MINERALS NOS [Concomitant]
     Indication: PROPHYLAXIS
     Dosage: OMEGA PLUS MULTIVITAMIN
  12. FIRMAGON [Concomitant]
     Active Substance: DEGARELIX ACETATE
     Indication: PROSTATE CANCER METASTATIC
     Dosage: UNK
  13. ENZALUTAMIDE [Suspect]
     Active Substance: ENZALUTAMIDE
     Indication: PROSTATE CANCER METASTATIC
     Dosage: UNK, 1X/DAY
     Route: 048
     Dates: start: 20190617
  14. CALCIUM LACTATE [Concomitant]
     Active Substance: CALCIUM LACTATE
     Indication: PROPHYLAXIS
     Dosage: UNK

REACTIONS (1)
  - Syncope [Recovered/Resolved]

NARRATIVE: CASE EVENT DATE: 20191028
